FAERS Safety Report 4298989-7 (Version None)
Quarter: 2004Q1

REPORT INFORMATION
  Report Type: 
  Country: None (occurrence: None)
  Receive Date: 20040217
  Receipt Date: 20040203
  Transmission Date: 20041129
  Serious: Yes (Other)
  Sender: FDA-Public Use
  Company Number: 2004-UK-00114UK

PATIENT
  Sex: Female

DRUGS (9)
  1. SPIRIVA [Suspect]
     Indication: CHRONIC OBSTRUCTIVE AIRWAYS DISEASE
     Dosage: 18 MCG (18 MCG, ONCE DAILY)
     Dates: start: 20031217
  2. FEXOFENADINE (FEXOFENADINE) (NR) [Suspect]
     Indication: HYPERSENSITIVITY
     Dosage: 180 MG
     Dates: start: 20031103, end: 20031204
  3. PAROXETINE (PAROXETINE) (NR) [Concomitant]
  4. PROPRANOLOL (PROPRANOLOL) (NR) (PROPRANOLOL-HCL) [Concomitant]
  5. TRAMADOL (TRAMADOL) (NR) [Concomitant]
  6. RIZATRIPTAN (RIZATRIPTAN) (NR) [Concomitant]
  7. SEREVENT (NR) [Concomitant]
  8. SYMBICORT (NR) [Concomitant]
  9. TERBUTALINE (TERBUTALINE (NR) [Concomitant]

REACTIONS (1)
  - OESOPHAGEAL SPASM [None]
